FAERS Safety Report 21503142 (Version 3)
Quarter: 2022Q4

REPORT INFORMATION
  Report Type: Spontaneous
  Country: JP (occurrence: JP)
  Receive Date: 20221025
  Receipt Date: 20221129
  Transmission Date: 20230113
  Serious: Yes (Other)
  Sender: FDA-Public Use
  Company Number: JP-CHUGAI-2022037226

PATIENT
  Age: 7 Decade
  Sex: Male
  Weight: 78.5 kg

DRUGS (1)
  1. HEMLIBRA [Suspect]
     Active Substance: EMICIZUMAB-KXWH
     Indication: Haemophilia A without inhibitors
     Dosage: 240 MILLIGRAM, ONCE/2WEEKS
     Route: 058
     Dates: start: 20220420, end: 20221005

REACTIONS (4)
  - Hip surgery [Unknown]
  - Haemorrhage subcutaneous [Recovered/Resolved]
  - Arthralgia [Recovered/Resolved]
  - Haemorrhage subcutaneous [Recovered/Resolved]

NARRATIVE: CASE EVENT DATE: 20220824
